FAERS Safety Report 8237301-5 (Version None)
Quarter: 2012Q1

REPORT INFORMATION
  Report Type: 
  Country: None (occurrence: None)
  Receive Date: 20120327
  Receipt Date: 20120319
  Transmission Date: 20120608
  Serious: Yes (Other)
  Sender: FDA-Public Use
  Company Number: NL-PFIZER INC-2012059991

PATIENT
  Age: 39 Year
  Sex: Male
  Weight: 90 kg

DRUGS (5)
  1. CLARITHROMYCIN [Suspect]
     Dosage: 500 MG, 2X/DAY
     Route: 048
     Dates: start: 20120222, end: 20120228
  2. RABEPRAZOLE SODIUM [Suspect]
     Dosage: 1 DF, 1X/DAY
     Route: 048
     Dates: start: 20120229, end: 20120302
  3. AMOXICILLIN TRIHYDRATE [Suspect]
     Dosage: 1000 MG, 2X/DAY
     Route: 048
     Dates: start: 20120222, end: 20120228
  4. PANTOPRAZOLE [Suspect]
     Dosage: 40 MG, 2X/DAY
     Route: 048
     Dates: start: 20120222, end: 20120228
  5. ULTRACET [Concomitant]
     Indication: PAIN
     Dosage: 1 DF, 2X/DAY
     Route: 048
     Dates: start: 20120131

REACTIONS (10)
  - OEDEMA PERIPHERAL [None]
  - LIP SWELLING [None]
  - AGEUSIA [None]
  - BLISTER [None]
  - PAIN IN EXTREMITY [None]
  - PENIS DISORDER [None]
  - PRURITUS [None]
  - RASH [None]
  - MYALGIA [None]
  - GAIT DISTURBANCE [None]
